FAERS Safety Report 4896463-8 (Version None)
Quarter: 2005Q4

REPORT INFORMATION
  Report Type: 
  Country: None (occurrence: None)
  Receive Date: 20051223
  Receipt Date: 20051122
  Transmission Date: 20060501
  Serious: No
  Sender: FDA-Public Use
  Company Number: 05P-163-0317879-00

PATIENT
  Age: 72 Year
  Sex: Female
  Weight: 59.8748 kg

DRUGS (9)
  1. HUMIRA [Suspect]
     Indication: RHEUMATOID ARTHRITIS
     Dosage: SEE IMAGE
     Route: 058
     Dates: start: 20050401, end: 20050815
  2. HUMIRA [Suspect]
     Indication: RHEUMATOID ARTHRITIS
     Dosage: SEE IMAGE
     Route: 058
     Dates: start: 20050815, end: 20051001
  3. HUMIRA [Suspect]
     Indication: RHEUMATOID ARTHRITIS
     Dosage: SEE IMAGE
     Route: 058
     Dates: start: 20051001
  4. PREDNISONE [Concomitant]
  5. METHOTREXATE [Concomitant]
  6. FOLIC ACID [Concomitant]
  7. CALCIUM GLUCONATE [Concomitant]
  8. MULTIVITAMIN [Concomitant]
  9. ASPIRIN [Concomitant]

REACTIONS (2)
  - CONDITION AGGRAVATED [None]
  - RHEUMATOID ARTHRITIS [None]
